FAERS Safety Report 4896601-7 (Version None)
Quarter: 2005Q4

REPORT INFORMATION
  Report Type: 
  Country: None (occurrence: None)
  Receive Date: 20051223
  Receipt Date: 20051111
  Transmission Date: 20060501
  Serious: Yes (Other)
  Sender: FDA-Public Use
  Company Number: 424525

PATIENT
  Age: 53 Year
  Sex: Female

DRUGS (16)
  1. COPEGUS [Suspect]
     Indication: HEPATITIS C
     Dosage: ORAL
     Route: 048
     Dates: start: 20050902
  2. PEG-INTRON [Suspect]
     Indication: HEPATITIS C
     Dosage: SUBCUTANEOUS
     Route: 058
     Dates: start: 20050902
  3. ALBUTEROL [Concomitant]
  4. ASPIRIN [Concomitant]
  5. CELEBREX [Concomitant]
  6. CLOTRIMAZOLE [Concomitant]
  7. FLOVENT [Concomitant]
  8. FUROSEMIDE [Concomitant]
  9. LORATADINE [Concomitant]
  10. NASONEX [Concomitant]
  11. NYSTATIN POWDER (NYSTATIN) [Concomitant]
  12. PACERONE [Concomitant]
  13. PERCOCET (OXYCODONE/PARACETAMOL) [Concomitant]
  14. PRENATAL VITAMINS (MINERALS NOS/MULTIVITAMIN NOS) [Concomitant]
  15. VITAMIN E (ALPHA-TOCOPHEROL) [Concomitant]
  16. XANAX [Concomitant]

REACTIONS (1)
  - AGGRESSION [None]
